FAERS Safety Report 12210940 (Version 4)
Quarter: 2016Q4

REPORT INFORMATION
  Report Type: Report from Study
  Country: BR (occurrence: BR)
  Receive Date: 20160325
  Receipt Date: 20161004
  Transmission Date: 20170207
  Serious: Yes (Hospitalization, Other)
  Sender: FDA-Public Use
  Company Number: PHHY2016BR038967

PATIENT
  Sex: Male
  Weight: 56.5 kg

DRUGS (4)
  1. EXJADE [Suspect]
     Active Substance: DEFERASIROX
     Dosage: 500 MG 3 TABLETS AND 250 MG 1 TABLET
     Route: 048
     Dates: start: 201607
  2. FOLIC ACID. [Concomitant]
     Active Substance: FOLIC ACID
     Indication: PRODUCT USED FOR UNKNOWN INDICATION
     Dosage: 1 DF, QD
     Route: 048
  3. EXJADE [Suspect]
     Active Substance: DEFERASIROX
     Indication: SICKLE CELL ANAEMIA
     Dosage: 20 MG/KG, QD
     Route: 048
     Dates: start: 2001
  4. HYDREA [Concomitant]
     Active Substance: HYDROXYUREA
     Indication: SICKLE CELL ANAEMIA
     Dosage: 3 DF, QD
     Route: 048

REACTIONS (11)
  - Hepatic siderosis [Unknown]
  - Headache [Unknown]
  - Vertigo [Unknown]
  - Abdominal pain [Unknown]
  - Chest pain [Unknown]
  - Feeding disorder [Unknown]
  - Cerebrovascular accident [Recovering/Resolving]
  - Hypoaesthesia oral [Unknown]
  - Diarrhoea [Recovered/Resolved]
  - Nausea [Unknown]
  - Weight gain poor [Unknown]
